FAERS Safety Report 14725936 (Version 5)
Quarter: 2019Q2

REPORT INFORMATION
  Report Type: Spontaneous
  Country: US (occurrence: US)
  Receive Date: 20180406
  Receipt Date: 20190421
  Transmission Date: 20190711
  Serious: Yes (Other)
  Sender: FDA-Public Use
  Company Number: US-AMGEN-USASP2018043893

PATIENT
  Age: 3 Year
  Sex: Female

DRUGS (16)
  1. NPLATE [Suspect]
     Active Substance: ROMIPLOSTIM
     Dosage: 0.3 MILLILITER
     Route: 065
     Dates: start: 2018, end: 2018
  2. NPLATE [Suspect]
     Active Substance: ROMIPLOSTIM
     Dosage: 0.27 MILLILITER
     Route: 065
     Dates: start: 20190208
  3. NPLATE [Suspect]
     Active Substance: ROMIPLOSTIM
     Indication: IMMUNE THROMBOCYTOPENIC PURPURA
     Dosage: 25 MICROGRAM
     Route: 065
     Dates: start: 201803, end: 2018
  4. NPLATE [Suspect]
     Active Substance: ROMIPLOSTIM
     Dosage: 0.3 MILLILITER
     Route: 065
     Dates: start: 20180420, end: 2018
  5. NPLATE [Suspect]
     Active Substance: ROMIPLOSTIM
     Dosage: 0.3 MILLILITER
     Route: 065
     Dates: start: 20190125
  6. NPLATE [Suspect]
     Active Substance: ROMIPLOSTIM
     Dosage: 0.24 MILLILITER
     Route: 065
     Dates: start: 2019
  7. NPLATE [Suspect]
     Active Substance: ROMIPLOSTIM
     Dosage: 0.21 MILLILITER
     Route: 065
     Dates: start: 2019
  8. PEPCID [Concomitant]
     Active Substance: FAMOTIDINE
     Indication: GASTROOESOPHAGEAL REFLUX DISEASE
     Dosage: 1.22 UNK, BID
  9. NPLATE [Suspect]
     Active Substance: ROMIPLOSTIM
     Dosage: 0.3 MILLILITER
     Route: 065
     Dates: start: 201808, end: 201808
  10. NPLATE [Suspect]
     Active Substance: ROMIPLOSTIM
     Dosage: 0.35 MILLILITER
     Route: 065
     Dates: start: 201809, end: 201812
  11. RITUXIMAB. [Concomitant]
     Active Substance: RITUXIMAB
     Dosage: UNK
  12. NYSTATIN. [Concomitant]
     Active Substance: NYSTATIN
     Dosage: UNK
  13. NPLATE [Suspect]
     Active Substance: ROMIPLOSTIM
     Dosage: 175 MICROGRAM
     Route: 065
     Dates: start: 201806, end: 201808
  14. NPLATE [Suspect]
     Active Substance: ROMIPLOSTIM
     Dosage: 0.3 MILLILITER
     Route: 065
     Dates: start: 20190111
  15. NPLATE [Suspect]
     Active Substance: ROMIPLOSTIM
     Dosage: 0.24 MILLILITER
     Route: 065
     Dates: start: 2019
  16. NPLATE [Suspect]
     Active Substance: ROMIPLOSTIM
     Dosage: 0.25 MILLILITER
     Route: 065

REACTIONS (22)
  - Developmental delay [Unknown]
  - Speech disorder [Unknown]
  - Skin lesion [Unknown]
  - Vomiting [Not Recovered/Not Resolved]
  - Insomnia [Unknown]
  - Abdominal pain [Not Recovered/Not Resolved]
  - Cyst [Unknown]
  - Dysphagia [Unknown]
  - Arthralgia [Unknown]
  - Retching [Unknown]
  - Platelet count decreased [Unknown]
  - Feeding disorder [Not Recovered/Not Resolved]
  - Overdose [Unknown]
  - Crying [Unknown]
  - Weight decreased [Not Recovered/Not Resolved]
  - Nausea [Not Recovered/Not Resolved]
  - Myalgia [Unknown]
  - Gastric ulcer [Not Recovered/Not Resolved]
  - Off label use [Unknown]
  - Muscular weakness [Not Recovered/Not Resolved]
  - Decreased appetite [Not Recovered/Not Resolved]
  - Contusion [Unknown]

NARRATIVE: CASE EVENT DATE: 20180420
